FAERS Safety Report 11119524 (Version 2)
Quarter: 2016Q1

REPORT INFORMATION
  Report Type: Spontaneous
  Country: US (occurrence: US)
  Receive Date: 20150518
  Receipt Date: 20160108
  Transmission Date: 20160525
  Serious: No
  Sender: FDA-Public Use
  Company Number: US-BRISTOL-MYERS SQUIBB COMPANY-BMS-2015-030104

PATIENT
  Sex: Female

DRUGS (1)
  1. NULOJIX [Suspect]
     Active Substance: BELATACEPT
     Indication: CONVERSION DISORDER
     Route: 065

REACTIONS (3)
  - Toxoplasmosis [Recovering/Resolving]
  - Visual impairment [Recovering/Resolving]
  - Off label use [Unknown]
